FAERS Safety Report 7709875-1 (Version None)
Quarter: 2011Q3

REPORT INFORMATION
  Report Type: 
  Country: None (occurrence: None)
  Receive Date: 20110825
  Receipt Date: 20110726
  Transmission Date: 20111222
  Serious: Yes (Hospitalization)
  Sender: FDA-Public Use
  Company Number: IT-ACTELION-A-CH2011-52024

PATIENT
  Sex: Male
  Weight: 12 kg

DRUGS (2)
  1. MYOZYME [Concomitant]
     Dosage: UNK
  2. ZAVESCA [Suspect]
     Indication: GLYCOGEN STORAGE DISEASE TYPE II
     Dosage: 150 MG, QD
     Route: 048
     Dates: start: 20110713

REACTIONS (1)
  - BLOOD CREATINE PHOSPHOKINASE INCREASED [None]
